FAERS Safety Report 7872430-7 (Version None)
Quarter: 2011Q4

REPORT INFORMATION
  Report Type: 
  Country: None (occurrence: None)
  Receive Date: 20111030
  Receipt Date: 20111017
  Transmission Date: 20120403
  Serious: Yes (Other)
  Sender: FDA-Public Use
  Company Number: TW-MYLANLABS-2011S1021895

PATIENT
  Age: 26 Year
  Sex: Female

DRUGS (7)
  1. QUETIAPINE [Suspect]
     Indication: SCHIZOPHRENIA
     Dosage: 150 MG/DAY
     Route: 065
  2. CLOZAPINE [Suspect]
     Dosage: 25 MG/DAY
     Route: 065
  3. CLOZAPINE [Suspect]
     Indication: SCHIZOPHRENIA
     Dosage: 12.5 MG/DAY
     Route: 065
  4. BIPERIDEN HYDROCHLORIDE TAB [Suspect]
     Dosage: 4 MG/DAY
     Route: 065
  5. CLOZAPINE [Suspect]
     Dosage: 50 MG/DAY
     Route: 065
  6. BIPERIDEN HYDROCHLORIDE TAB [Suspect]
     Route: 030
  7. BIPERIDEN HYDROCHLORIDE TAB [Suspect]
     Indication: EXTRAPYRAMIDAL DISORDER
     Dosage: 2 MG/DAY
     Route: 065

REACTIONS (2)
  - MYASTHENIA GRAVIS CRISIS [None]
  - EXTRAPYRAMIDAL DISORDER [None]
